FAERS Safety Report 9519017 (Version 2)
Quarter: 2014Q1

REPORT INFORMATION
  Report Type: Spontaneous
  Country: US (occurrence: None)
  Receive Date: 20130305
  Receipt Date: 20140306
  Transmission Date: 20141002
  Serious: Yes (Life-Threatening, Hospitalization, Other)
  Sender: FDA-Public Use
  Company Number: 163-21880-12070999

PATIENT
  Age: 69 Year
  Sex: Female
  Weight: 102 kg

DRUGS (26)
  1. REVLIMID [Suspect]
     Indication: PLASMA CELL MYELOMA
     Dosage: 15 MG, 21 IN 21 D, PO
     Route: 048
     Dates: start: 20120501
  2. ADVAIR (SERETIDE MITE) (UNKNOWN) [Concomitant]
  3. ADVIL (IBUPROFEN) (UNKNOWN) [Concomitant]
  4. APAP (PARACETAMOL) (UNKNOWN) [Concomitant]
  5. ASPIRIN (ACETYLSALICYLIC ACID) (UNKNOWN) (ACETYLSALICYLIC ACID) [Concomitant]
  6. ATENOLOL (ATENOLOL) (UNKNOWN) [Concomitant]
  7. BUSPAR (BUSPIRONE HYDROCHLORIDE) [Concomitant]
  8. CALCIUM (CALCIUM) [Concomitant]
  9. DEXAMETHASONE (DEXAMETHASONE) [Concomitant]
  10. DULCOLAX (BISACODYL) [Concomitant]
  11. LASIX (FUROSEMIDE) [Concomitant]
  12. LEXAPRO (ESCITALOPRAM OXALATE) [Concomitant]
  13. MULTIVITAMNS (MULTIVITAMINS) [Concomitant]
  14. NASACORT (TRIAMCINOLONE ACETONIDE) [Concomitant]
  15. PREVACID (LANSOPRAZOLE) [Concomitant]
  16. PROVENTIL (SALBUTAMOL) [Concomitant]
  17. SENNA S (COLOXYL WITH SENNA) [Concomitant]
  18. ZOFRAN (ONDANSETRON HYDROCHLORIDE)  (UNKNOWN) [Concomitant]
  19. ZOMETA (ZOLEDRONIC ACID) (UNKNOWN) [Concomitant]
  20. TYLENOL (PARACETAHOL) (UNKNOWN) [Concomitant]
  21. COUMADIN (WARFARIN SODIUM) (UNKNOWN) [Concomitant]
  22. AMBIEN (ZOLPIDEM TARTRATE) [Concomitant]
  23. LIPITOR (ATORVASTATIN) [Concomitant]
  24. PERCOCET (OXYCOCET) [Concomitant]
  25. PROCHLORPERAZINE [Concomitant]
  26. METHADONE HCL (METHADONE HYDROCHLORIDE) [Concomitant]

REACTIONS (7)
  - Asthenia [None]
  - Fatigue [None]
  - Thrombosis [None]
  - Pulmonary embolism [None]
  - Disturbance in attention [None]
  - Nausea [None]
  - Transient ischaemic attack [None]
